FAERS Safety Report 7550352-9 (Version None)
Quarter: 2011Q2

REPORT INFORMATION
  Report Type: 
  Country: None (occurrence: None)
  Receive Date: 20110615
  Receipt Date: 20110610
  Transmission Date: 20111010
  Serious: Yes (Hospitalization)
  Sender: FDA-Public Use
  Company Number: JP-ABBOTT-10P-087-0656505-00

PATIENT
  Sex: Female

DRUGS (15)
  1. TALION [Concomitant]
     Indication: DERMATITIS ATOPIC
     Dosage: DAILY DOSE: 10MG
     Route: 048
     Dates: start: 20100403, end: 20100407
  2. CLONAZEPAM [Concomitant]
     Indication: SENSORY DISTURBANCE
     Dosage: DAILY DOSE: 0.5MG
     Route: 048
     Dates: start: 20100428
  3. AKINETON [Suspect]
     Dosage: DAILY DOSE: 2MG
     Route: 048
     Dates: start: 20100429, end: 20100430
  4. AKINETON [Suspect]
     Dosage: DAILY DOSE: 3MG
     Route: 048
     Dates: start: 20100430, end: 20100507
  5. TALION [Concomitant]
     Dosage: DAILY DOSE: 20MG
     Route: 048
     Dates: start: 20100408
  6. ABILIFY [Suspect]
     Route: 048
     Dates: start: 20100423, end: 20100427
  7. SILECE [Concomitant]
     Indication: PRODUCT USED FOR UNKNOWN INDICATION
     Dosage: DAILY DOSE: 1MG
     Route: 048
     Dates: start: 20100430
  8. AKINETON [Suspect]
     Indication: PARKINSONISM
     Dosage: DAILY DOSE: 6MG
     Route: 048
     Dates: start: 20100507, end: 20100520
  9. ABILIFY [Suspect]
     Indication: SCHIZOPHRENIA
     Dosage: DAILY DOSE: 18MG
     Route: 048
     Dates: start: 20100428, end: 20100517
  10. ABILIFY [Suspect]
     Dosage: DAILY DOSE: 6MG
     Route: 048
     Dates: start: 20100408, end: 20100415
  11. ABILIFY [Suspect]
     Dosage: DAILY DOSE: 12MG
     Route: 048
     Dates: start: 20100416, end: 20100422
  12. CHLORPROMAZINE HYDROCHLORIDE [Suspect]
     Indication: PRODUCT USED FOR UNKNOWN INDICATION
     Dosage: DAILY DOSE: 75MG
     Route: 048
     Dates: start: 20100507, end: 20100517
  13. AKINETON [Suspect]
     Dosage: DAILY DOSE: 3MG
     Route: 048
     Dates: start: 20100521, end: 20100524
  14. LORAZEPAM [Concomitant]
     Indication: PRODUCT USED FOR UNKNOWN INDICATION
     Dosage: DAILY DOSE: 1MG
     Route: 048
     Dates: start: 20100401, end: 20100513
  15. MAGNESIUM OXIDE [Concomitant]
     Indication: CONSTIPATION
     Dosage: DAILY DOSE: 1.5MG
     Route: 048
     Dates: start: 20100405

REACTIONS (5)
  - HEPATITIS [None]
  - GALLBLADDER OEDEMA [None]
  - LIVER DISORDER [None]
  - PYREXIA [None]
  - ACTIVITIES OF DAILY LIVING IMPAIRED [None]
